FAERS Safety Report 6850189-X (Version None)
Quarter: 2010Q3

REPORT INFORMATION
  Report Type: 
  Country: None (occurrence: None)
  Receive Date: 20100716
  Receipt Date: 20071011
  Transmission Date: 20110219
  Serious: No
  Sender: FDA-Public Use
  Company Number: US-PFIZER INC-2007087160

PATIENT
  Sex: Female
  Weight: 70.5 kg

DRUGS (16)
  1. CHANTIX [Suspect]
     Indication: SMOKING CESSATION THERAPY
     Route: 048
     Dates: start: 20071002
  2. ANTIBIOTICS [Suspect]
     Indication: PNEUMONIA
     Dates: end: 20071001
  3. NICOTINE POLACRILEX [Suspect]
     Dates: end: 20071011
  4. HYDROCHLOROTHIAZIDE [Concomitant]
  5. VERAPAMIL [Concomitant]
  6. WELLBUTRIN [Concomitant]
  7. CELEXA [Concomitant]
  8. IMITREX [Concomitant]
  9. DARVOCET [Concomitant]
  10. PERCOCET [Concomitant]
  11. VALTREX [Concomitant]
     Indication: ORAL HERPES
  12. IBUPROFEN [Concomitant]
  13. OMEPRAZOLE [Concomitant]
     Indication: ABDOMINAL DISCOMFORT
  14. MULTI-VITAMINS [Concomitant]
  15. VITAMIN C [Concomitant]
  16. ZONEGRAN [Concomitant]

REACTIONS (2)
  - FUNGAL INFECTION [None]
  - RASH [None]
